FAERS Safety Report 6904079-4 (Version None)
Quarter: 2010Q3

REPORT INFORMATION
  Report Type: 
  Country: None (occurrence: None)
  Receive Date: 20100804
  Receipt Date: 20090309
  Transmission Date: 20110219
  Serious: Yes (Other)
  Sender: FDA-Public Use
  Company Number: DE-PFIZER INC-2009180464

PATIENT
  Sex: Female
  Weight: 77.11 kg

DRUGS (1)
  1. LYRICA [Suspect]
     Indication: NEURALGIA
     Dates: start: 20090201, end: 20090304

REACTIONS (5)
  - EMOTIONAL DISORDER [None]
  - MALAISE [None]
  - NAUSEA [None]
  - SUICIDAL BEHAVIOUR [None]
  - TREMOR [None]
